FAERS Safety Report 7600401-4 (Version None)
Quarter: 2011Q2

REPORT INFORMATION
  Report Type: 
  Country: None (occurrence: None)
  Receive Date: 20110629
  Receipt Date: 20110616
  Transmission Date: 20111010
  Serious: Yes (Death, Hospitalization, Other)
  Sender: FDA-Public Use
  Company Number: 2011MA007662

PATIENT
  Age: 48 Year
  Sex: Female

DRUGS (3)
  1. CYCLOPHOSPHAMIDE [Concomitant]
  2. FLUDARABINE PHOSPHATE [Suspect]
     Indication: METASTATIC MALIGNANT MELANOMA
     Dosage: 25 MG/M;
  3. FLUDARABINE PHOSPHATE [Concomitant]

REACTIONS (18)
  - HYPOAESTHESIA [None]
  - TOXICITY TO VARIOUS AGENTS [None]
  - NERVOUS SYSTEM DISORDER [None]
  - RETINAL DEGENERATION [None]
  - NEUROTOXICITY [None]
  - VISUAL PATHWAY DISORDER [None]
  - VISUAL FIELD DEFECT [None]
  - RETINOPATHY [None]
  - OPTIC ATROPHY [None]
  - VISUAL ACUITY REDUCED [None]
  - GLIOSIS [None]
  - GENERAL PHYSICAL HEALTH DETERIORATION [None]
  - MALIGNANT MELANOMA [None]
  - THERAPY RESPONDER [None]
  - SPINAL CORD DISORDER [None]
  - NEOPLASM PROGRESSION [None]
  - MACROPHAGES INCREASED [None]
  - MUSCULAR WEAKNESS [None]
